FAERS Safety Report 7308014-9 (Version None)
Quarter: 2011Q1

REPORT INFORMATION
  Report Type: 
  Country: None (occurrence: None)
  Receive Date: 20110209
  Receipt Date: 20110201
  Transmission Date: 20110831
  Serious: Yes (Hospitalization)
  Sender: FDA-Public Use
  Company Number: 11-000096

PATIENT
  Age: 79 Year
  Sex: Female
  Weight: 55.3 kg

DRUGS (6)
  1. ESTRACE [Suspect]
     Indication: VULVOVAGINAL DRYNESS
     Dosage: 1 G, PRN, VAGINAL, 1 G, TWICE WEEKLY THEN A LITTLE MORE FREQUENTLY
     Route: 067
     Dates: start: 20110101
  2. ATIVAN [Concomitant]
  3. ZOLOFT [Concomitant]
  4. TOPROL-XL [Concomitant]
  5. CRESTOR [Concomitant]
  6. ASPIRIN (ACETYLSALICYLIC ACID) [Concomitant]

REACTIONS (15)
  - PRURITUS [None]
  - ERYTHEMA [None]
  - PAIN OF SKIN [None]
  - NIPPLE DISORDER [None]
  - VULVOVAGINAL PRURITUS [None]
  - FLATULENCE [None]
  - SKIN DISORDER [None]
  - VULVOVAGINAL MYCOTIC INFECTION [None]
  - BREAST TENDERNESS [None]
  - VULVOVAGINAL ERYTHEMA [None]
  - SCRATCH [None]
  - ABDOMINAL DISTENSION [None]
  - BREAST PAIN [None]
  - BREAST ENLARGEMENT [None]
  - CYSTITIS [None]
